FAERS Safety Report 9188773 (Version 1)
Quarter: 2013Q1

REPORT INFORMATION
  Report Type: Spontaneous
  Country: FR (occurrence: FR)
  Receive Date: 20130326
  Receipt Date: 20130326
  Transmission Date: 20140127
  Serious: Yes (Hospitalization)
  Sender: FDA-Public Use
  Company Number: FR-B.I. PHARMACEUTICALS,INC./RIDGEFIELD-2013-FF-00760FF

PATIENT
  Age: 96 Year
  Sex: Female

DRUGS (5)
  1. PRADAXA [Suspect]
     Dosage: 220 MG
     Route: 048
     Dates: start: 20121210, end: 20121219
  2. CAPTOPRIL [Suspect]
     Route: 048
  3. LASILIX [Suspect]
     Dosage: 60 MG
     Route: 048
     Dates: start: 20121210, end: 20121217
  4. HEMIGOXINE NATIVELLE [Suspect]
     Route: 048
     Dates: start: 20121210, end: 20121219
  5. CORDARONE [Suspect]
     Route: 048
     Dates: start: 20121210

REACTIONS (1)
  - Renal failure [Not Recovered/Not Resolved]
